FAERS Safety Report 17170169 (Version 8)
Quarter: 2020Q1

REPORT INFORMATION
  Report Type: Report from Study
  Country: US (occurrence: US)
  Receive Date: 20191218
  Receipt Date: 20200313
  Transmission Date: 20200409
  Serious: Yes (Hospitalization, Other)
  Sender: FDA-Public Use
  Company Number: US-GILEAD-2019-0442876

PATIENT
  Age: 50 Year
  Sex: Female
  Weight: 74.2 kg

DRUGS (11)
  1. UPTRAVI [Concomitant]
     Active Substance: SELEXIPAG
     Dosage: 200 UG
     Route: 065
  2. CILOSTAZOL. [Concomitant]
     Active Substance: CILOSTAZOL
  3. AMBRISENTAN [Suspect]
     Active Substance: AMBRISENTAN
     Indication: PRODUCT USED FOR UNKNOWN INDICATION
     Dosage: 10 MG, QD
     Route: 048
     Dates: start: 20191017
  4. UPTRAVI [Concomitant]
     Active Substance: SELEXIPAG
     Dosage: 1000 UG, BID
     Route: 065
  5. UPTRAVI [Concomitant]
     Active Substance: SELEXIPAG
     Dosage: 600 UNK
     Route: 048
  6. SILDENAFIL. [Concomitant]
     Active Substance: SILDENAFIL
     Dosage: UNK
  7. ESTRADIOL. [Concomitant]
     Active Substance: ESTRADIOL
  8. DULOXETINE. [Concomitant]
     Active Substance: DULOXETINE
  9. UPTRAVI [Concomitant]
     Active Substance: SELEXIPAG
     Indication: PRODUCT USED FOR UNKNOWN INDICATION
     Dosage: 800 UG, BID
     Route: 065
     Dates: start: 20200106
  10. UPTRAVI [Concomitant]
     Active Substance: SELEXIPAG
     Dosage: 800 UG, BID
     Route: 065
  11. BUSPIRONE [BUSPIRONE HYDROCHLORIDE] [Concomitant]

REACTIONS (15)
  - Blood pressure abnormal [Not Recovered/Not Resolved]
  - Lower respiratory tract infection [Not Recovered/Not Resolved]
  - Pneumonia [Unknown]
  - Malaise [Not Recovered/Not Resolved]
  - Arthralgia [Recovered/Resolved]
  - Oedema peripheral [Unknown]
  - Accidental exposure to product [Unknown]
  - Oxygen saturation abnormal [Not Recovered/Not Resolved]
  - Pain [Recovered/Resolved]
  - Lymphadenopathy [Unknown]
  - Dyspnoea [Not Recovered/Not Resolved]
  - Heart rate abnormal [Unknown]
  - Ventilation perfusion mismatch [Unknown]
  - Headache [Unknown]
  - Psoriatic arthropathy [Not Recovered/Not Resolved]

NARRATIVE: CASE EVENT DATE: 20200114
